FAERS Safety Report 16810799 (Version 1)
Quarter: 2019Q3

REPORT INFORMATION
  Report Type: Spontaneous
  Country: RU (occurrence: RU)
  Receive Date: 20190916
  Receipt Date: 20190916
  Transmission Date: 20191005
  Serious: Yes (Other)
  Sender: FDA-Public Use
  Company Number: RU-AMNEAL PHARMACEUTICALS-2019-AMRX-01865

PATIENT

DRUGS (1)
  1. PROPRANOLOL HYDROCHLORIDE IR [Suspect]
     Active Substance: PROPRANOLOL HYDROCHLORIDE
     Indication: INFANTILE HAEMANGIOMA
     Dosage: UNK
     Route: 065

REACTIONS (2)
  - Syncope [Recovered/Resolved]
  - Cardiac arrest [Recovered/Resolved]
